FAERS Safety Report 18034949 (Version 1)
Quarter: 2020Q3

REPORT INFORMATION
  Report Type: Spontaneous
  Country: US (occurrence: US)
  Receive Date: 20200716
  Receipt Date: 20200716
  Transmission Date: 20201103
  Serious: Yes (Death)
  Sender: FDA-Public Use
  Company Number: None

PATIENT
  Age: 64 Year
  Sex: Male
  Weight: 81.4 kg

DRUGS (8)
  1. THIAMINE. [Concomitant]
     Active Substance: THIAMINE
     Dates: start: 20200707, end: 20200709
  2. ATIVAN [Concomitant]
     Active Substance: LORAZEPAM
     Dates: start: 20200711, end: 20200711
  3. FUROSEMIDE. [Concomitant]
     Active Substance: FUROSEMIDE
     Dates: start: 20200709, end: 20200710
  4. ZINC. [Concomitant]
     Active Substance: ZINC
     Dates: start: 20200708, end: 20200709
  5. LOVENOX [Concomitant]
     Active Substance: ENOXAPARIN SODIUM
     Dates: start: 20200709, end: 20200710
  6. IOHEXOL [Concomitant]
     Active Substance: IOHEXOL
     Dates: start: 20200709, end: 20200709
  7. REMDESIVIR. [Suspect]
     Active Substance: REMDESIVIR
     Indication: COVID-19
     Route: 040
     Dates: start: 20200707, end: 20200710
  8. DEXAMETHASONE. [Concomitant]
     Active Substance: DEXAMETHASONE
     Dates: start: 20200706, end: 20200710

REACTIONS (4)
  - Respiratory distress [None]
  - Headache [None]
  - Agitation [None]
  - Diarrhoea [None]

NARRATIVE: CASE EVENT DATE: 20200710
